FAERS Safety Report 8556235-X (Version None)
Quarter: 2012Q3

REPORT INFORMATION
  Report Type: 
  Country: None (occurrence: None)
  Receive Date: 20120801
  Receipt Date: 20110218
  Transmission Date: 20120928
  Serious: Yes (Other)
  Sender: FDA-Public Use
  Company Number: CA-BAYER-2011-003027

PATIENT
  Sex: Female

DRUGS (1)
  1. CIPROFLOXACIN HCL [Suspect]
     Indication: KIDNEY INFECTION
     Dosage: UNK
     Dates: start: 20100401

REACTIONS (3)
  - JOINT INJURY [None]
  - ARTHRALGIA [None]
  - TENDON RUPTURE [None]
